FAERS Safety Report 9350786 (Version 4)
Quarter: 2013Q4

REPORT INFORMATION
  Report Type: Spontaneous
  Country: FR (occurrence: FR)
  Receive Date: 20130617
  Receipt Date: 20131209
  Transmission Date: 20140711
  Serious: Yes (Hospitalization, Other)
  Sender: FDA-Public Use
  Company Number: FR-MPIJNJ-2013-04376

PATIENT
  Sex: 0

DRUGS (10)
  1. VELCADE [Suspect]
     Indication: PLASMA CELL MYELOMA
     Dosage: 1.3 MG/M2, UNK
     Route: 065
     Dates: start: 20130409, end: 20130524
  2. VELCADE [Suspect]
     Dosage: 1.0 MG/M2, UNK
     Route: 065
     Dates: start: 20130604
  3. CORTISONE [Suspect]
     Indication: PLASMA CELL MYELOMA
     Route: 065
  4. DEXAMETHASONE [Concomitant]
     Indication: PLASMA CELL MYELOMA
     Dosage: UNK
     Route: 042
     Dates: start: 20130409, end: 20130604
  5. LEXOMIL [Concomitant]
  6. THALIDOMIDE [Concomitant]
     Dosage: 100 MG, UNK
  7. MORPHIN                            /00036303/ [Concomitant]
  8. DUROGESIC [Concomitant]
     Dosage: 25 UNK, UNK
     Dates: start: 20130406, end: 201306
  9. CORTANCYL [Concomitant]
     Dosage: 10 MG, UNK
     Dates: start: 20130409, end: 201306
  10. HYDROCORTISONE [Concomitant]
     Dosage: 30 MG, UNK
     Dates: start: 20130409

REACTIONS (6)
  - Amnesia [Recovered/Resolved]
  - Personality disorder [Recovered/Resolved]
  - Abnormal dreams [Recovered/Resolved]
  - Suicide attempt [Recovered/Resolved]
  - Asthenia [Unknown]
  - Depression [Recovered/Resolved]
